FAERS Safety Report 5424683-2 (Version None)
Quarter: 2007Q3

REPORT INFORMATION
  Report Type: 
  Country: None (occurrence: None)
  Receive Date: 20070824
  Receipt Date: 20070821
  Transmission Date: 20080115
  Serious: Yes (Death, Hospitalization, Other)
  Sender: FDA-Public Use
  Company Number: PHEH2007US03787

PATIENT
  Age: 77 Year
  Sex: Male

DRUGS (2)
  1. ZELNORM [Suspect]
     Dosage: 2 MG, BID
     Route: 048
     Dates: start: 20060901
  2. ZELNORM [Suspect]
     Dosage: 6 MG, UNK
     Route: 048
     Dates: end: 20070330

REACTIONS (8)
  - ASTHENIA [None]
  - ATRIAL FIBRILLATION [None]
  - CARDIAC ARREST [None]
  - CARDIAC FAILURE CONGESTIVE [None]
  - HIP FRACTURE [None]
  - HYPOTENSION [None]
  - SURGERY [None]
  - VENTRICULAR ARRHYTHMIA [None]
